FAERS Safety Report 17611947 (Version 1)
Quarter: 2020Q2

REPORT INFORMATION
  Report Type: Spontaneous
  Country: US (occurrence: US)
  Receive Date: 20200401
  Receipt Date: 20200401
  Transmission Date: 20200713
  Serious: Yes (Hospitalization, Other)
  Sender: FDA-Public Use
  Company Number: US-TEVA-2020-US-1213823

PATIENT
  Sex: Male
  Weight: 77.18 kg

DRUGS (5)
  1. WELLBUTRIN [Concomitant]
     Active Substance: BUPROPION HYDROCHLORIDE
     Dosage: 300 MG
     Route: 065
  2. OXYCODONE IR [Concomitant]
     Active Substance: OXYCODONE
     Route: 065
  3. FENTORA [Suspect]
     Active Substance: FENTANYL CITRATE
     Dosage: 400MCG 4 TIMES PER DAY AS NEEDED
     Route: 065
  4. FENTORA [Suspect]
     Active Substance: FENTANYL CITRATE
     Indication: BONE PAIN
     Route: 065
  5. FENTANYL. [Concomitant]
     Active Substance: FENTANYL
     Dosage: PATCHES 25MG
     Route: 065

REACTIONS (12)
  - Presyncope [Unknown]
  - Therapy interrupted [Unknown]
  - Inability to afford medication [Unknown]
  - Stress fracture [Unknown]
  - Hallucination [Unknown]
  - Dizziness [Unknown]
  - Therapeutic product effect incomplete [Unknown]
  - Anxiety [Unknown]
  - Hallucination, visual [Unknown]
  - Photopsia [Unknown]
  - Loss of consciousness [Unknown]
  - Bone pain [Unknown]

NARRATIVE: CASE EVENT DATE: 2020
